FAERS Safety Report 6816208-1 (Version None)
Quarter: 2010Q3

REPORT INFORMATION
  Report Type: 
  Country: None (occurrence: None)
  Receive Date: 20100705
  Receipt Date: 20100628
  Transmission Date: 20110219
  Serious: Yes (Hospitalization, Other)
  Sender: FDA-Public Use
  Company Number: FR-BRISTOL-MYERS SQUIBB COMPANY-15171549

PATIENT
  Age: 75 Year
  Sex: Female

DRUGS (10)
  1. APROVEL [Suspect]
     Indication: HYPERTENSION
     Dosage: 1 DF:75 /DAY UNIT NOT SPECIFIED,06OCT2009 CHANGED TO 150 1/2 PER DAY.
     Route: 048
  2. COUMADIN [Suspect]
     Indication: THROMBOSIS PROPHYLAXIS
     Dosage: DURATION:LONG TERM
     Route: 048
     Dates: start: 20091003
  3. LEXOMIL [Suspect]
     Indication: ANXIETY
     Dosage: DURATION:LONG TERM,FORMULATION:TABS.
     Route: 048
  4. NOCTAMIDE [Suspect]
     Indication: INSOMNIA
     Dosage: DURATION:LONG TERM.
     Route: 048
  5. PREVISCAN [Concomitant]
     Indication: THROMBOSIS PROPHYLAXIS
     Route: 048
     Dates: end: 20090923
  6. HEMIGOXINE NATIVELLE [Concomitant]
     Indication: ATRIAL FIBRILLATION
     Route: 048
  7. CORDARONE [Concomitant]
     Indication: ATRIAL FIBRILLATION
     Dosage: DURATION:LONG TERM.
     Route: 048
  8. LANTUS [Concomitant]
     Indication: TYPE 1 DIABETES MELLITUS
     Dosage: DURATION:LONG TERM.
     Route: 058
  9. CALCIPARINE [Concomitant]
     Indication: THROMBOSIS PROPHYLAXIS
     Route: 058
     Dates: start: 20090924, end: 20091031
  10. MEMANTINE HCL [Concomitant]
     Dates: start: 20091005, end: 20091006

REACTIONS (4)
  - ABNORMAL BEHAVIOUR [None]
  - EPISTAXIS [None]
  - FACE INJURY [None]
  - FALL [None]
